FAERS Safety Report 20291224 (Version 1)
Quarter: 2022Q1

REPORT INFORMATION
  Report Type: Spontaneous
  Country: US (occurrence: None)
  Receive Date: 20220103
  Receipt Date: 20220103
  Transmission Date: 20220424
  Serious: Yes (Death)
  Sender: FDA-Public Use
  Company Number: None

PATIENT
  Sex: Female

DRUGS (22)
  1. CAPECITABINE [Suspect]
     Active Substance: CAPECITABINE
     Indication: Rectal cancer
     Dosage: FREQUENCY : TWICE A DAY;?
     Route: 048
  2. TYLENOL [Concomitant]
     Active Substance: ACETAMINOPHEN
  3. ASPIRIN [Concomitant]
     Active Substance: ASPIRIN
  4. BACLOFEN [Concomitant]
     Active Substance: BACLOFEN
  5. BUPRENORPHINE [Concomitant]
     Active Substance: BUPRENORPHINE
  6. calcium 600plus d [Concomitant]
  7. CHLORTHALIDONE [Concomitant]
     Active Substance: CHLORTHALIDONE
  8. LASIX [Concomitant]
     Active Substance: FUROSEMIDE
  9. NORCO [Concomitant]
     Active Substance: ACETAMINOPHEN\HYDROCODONE BITARTRATE
  10. LANTUS [Concomitant]
     Active Substance: INSULIN GLARGINE
  11. levalburterol [Concomitant]
  12. LOSARTAN [Concomitant]
     Active Substance: LOSARTAN
  13. MAGNESIUM OXIDE [Concomitant]
     Active Substance: MAGNESIUM OXIDE
  14. MELOXICAM [Concomitant]
     Active Substance: MELOXICAM
  15. METOPROLOL [Concomitant]
     Active Substance: METOPROLOL
  16. VITAMINS [Concomitant]
     Active Substance: VITAMINS
  17. NYSTATIN [Concomitant]
     Active Substance: NYSTATIN
  18. OMEPRAZOLE [Concomitant]
     Active Substance: OMEPRAZOLE
  19. osteobiflex [Concomitant]
  20. PREGABALIN [Concomitant]
     Active Substance: PREGABALIN
  21. ZOLOFT [Concomitant]
     Active Substance: SERTRALINE HYDROCHLORIDE
  22. SPIRIVA [Concomitant]
     Active Substance: TIOTROPIUM BROMIDE MONOHYDRATE

REACTIONS (1)
  - Cardiac disorder [None]
